FAERS Safety Report 18485125 (Version 1)
Quarter: 2020Q4

REPORT INFORMATION
  Report Type: Spontaneous
  Country: CN (occurrence: CN)
  Receive Date: 20201110
  Receipt Date: 20201110
  Transmission Date: 20210114
  Serious: Yes (Other)
  Sender: FDA-Public Use
  Company Number: CN-CHEPLA-C20203235

PATIENT
  Age: 64 Year
  Sex: Female

DRUGS (7)
  1. SODIUM HYALURONATE [Suspect]
     Active Substance: HYALURONATE SODIUM
     Indication: OPHTHALMIC HERPES ZOSTER
  2. RECOMBINANT VARICELLA ZOSTER VIRUS GLYCOPROTEIN E ANTIGEN. [Suspect]
     Active Substance: RECOMBINANT VARICELLA ZOSTER VIRUS GLYCOPROTEIN E ANTIGEN
     Indication: PROPHYLAXIS
     Dates: start: 20201014
  3. LEVOFLOXACIN. [Suspect]
     Active Substance: LEVOFLOXACIN
     Indication: OPHTHALMIC HERPES ZOSTER
  4. GANCICLOVIR. [Suspect]
     Active Substance: GANCICLOVIR
     Indication: OPHTHALMIC HERPES ZOSTER
     Route: 065
  5. SODIUM CHLORIDE. [Suspect]
     Active Substance: SODIUM CHLORIDE
     Indication: PRODUCT USED FOR UNKNOWN INDICATION
     Dosage: 4.5 MG
  6. CICLOSPORINE [Suspect]
     Active Substance: CYCLOSPORINE
     Indication: OPHTHALMIC HERPES ZOSTER
  7. RECOMBINANT BOVINE BASIC FIBROBLAST GROWTH FACTOR [Suspect]
     Active Substance: FIBROBLAST GROWTH FACTOR 2 (BOVINE)
     Indication: OPHTHALMIC HERPES ZOSTER

REACTIONS (6)
  - Eye haemorrhage [Not Recovered/Not Resolved]
  - Drug ineffective [Unknown]
  - Blindness [Not Recovered/Not Resolved]
  - Eye irritation [Not Recovered/Not Resolved]
  - Insomnia [Not Recovered/Not Resolved]
  - Product use in unapproved indication [Unknown]

NARRATIVE: CASE EVENT DATE: 20201016
